FAERS Safety Report 9338537 (Version 2)
Quarter: 2013Q3

REPORT INFORMATION
  Report Type: Spontaneous
  Country: DE (occurrence: DE)
  Receive Date: 20130610
  Receipt Date: 20130822
  Transmission Date: 20140515
  Serious: Yes (Other)
  Sender: FDA-Public Use
  Company Number: DE-JNJFOC-20130521114

PATIENT
  Sex: Male

DRUGS (3)
  1. XEPLION [Suspect]
     Indication: PSYCHOTIC DISORDER
     Route: 030
  2. XEPLION [Suspect]
     Indication: PSYCHOTIC DISORDER
     Route: 030
  3. XEPLION [Suspect]
     Indication: PSYCHOTIC DISORDER
     Route: 030

REACTIONS (2)
  - Extrapyramidal disorder [Recovered/Resolved]
  - Oropharyngeal spasm [Recovered/Resolved]
